FAERS Safety Report 4932436-4 (Version None)
Quarter: 2006Q1

REPORT INFORMATION
  Report Type: 
  Country: None (occurrence: None)
  Receive Date: 20060301
  Receipt Date: 20060207
  Transmission Date: 20060701
  Serious: Yes (Other)
  Sender: FDA-Public Use
  Company Number: 2006026776

PATIENT
  Age: 26 Year
  Sex: Male

DRUGS (2)
  1. LITHIUM                         (LITHIUM) [Suspect]
     Indication: BIPOLAR I DISORDER
  2. TEGRETOL [Suspect]
     Indication: ILL-DEFINED DISORDER

REACTIONS (2)
  - SUICIDE ATTEMPT [None]
  - TOXIC SKIN ERUPTION [None]
